FAERS Safety Report 9025908 (Version 1)
Quarter: 2012Q4

REPORT INFORMATION
  Report Type: Spontaneous
  Country: US (occurrence: None)
  Receive Date: 20121214
  Receipt Date: 20121214
  Transmission Date: 20130627
  Serious: Yes (Death)
  Sender: FDA-Public Use
  Company Number: None

PATIENT
  Age: 88 Year
  Sex: Male
  Weight: 54.43 kg

DRUGS (3)
  1. FINASTERIDE [Suspect]
     Indication: BENIGN PROSTATIC HYPERTROPHY
     Dosage: 5mg   daily  po
     Route: 048
     Dates: start: 20121029, end: 20121127
  2. LEVOTHYROXINE SODIUM [Concomitant]
  3. LISINOPRIL [Concomitant]

REACTIONS (1)
  - Completed suicide [None]
